FAERS Safety Report 7634752-4 (Version None)
Quarter: 2011Q3

REPORT INFORMATION
  Report Type: 
  Country: None (occurrence: None)
  Receive Date: 20110726
  Receipt Date: 20110718
  Transmission Date: 20111222
  Serious: Yes (Hospitalization)
  Sender: FDA-Public Use
  Company Number: US-BIOGENIDEC-2011BI026708

PATIENT
  Age: 42 Year
  Sex: Female

DRUGS (3)
  1. BACLOFEN [Concomitant]
  2. TYSABRI [Suspect]
     Indication: MULTIPLE SCLEROSIS
     Route: 042
     Dates: start: 20100223
  3. NEURONTIN [Concomitant]

REACTIONS (2)
  - RESPIRATORY DISORDER [None]
  - CEREBROVASCULAR ACCIDENT [None]
